FAERS Safety Report 23632239 (Version 1)
Quarter: 2024Q1

REPORT INFORMATION
  Report Type: Spontaneous
  Country: CA (occurrence: CA)
  Receive Date: 20240314
  Receipt Date: 20240314
  Transmission Date: 20240410
  Serious: Yes (Other)
  Sender: FDA-Public Use
  Company Number: CA-TAKEDA-2024TUS023222

PATIENT
  Age: 46 Year
  Sex: Male
  Weight: 93.8 kg

DRUGS (1)
  1. ENTYVIO [Suspect]
     Active Substance: VEDOLIZUMAB
     Indication: Product used for unknown indication
     Dosage: 300 MILLIGRAM
     Route: 042
     Dates: start: 20240222

REACTIONS (3)
  - Rectal haemorrhage [Unknown]
  - Weight decreased [Unknown]
  - Fatigue [Unknown]
